FAERS Safety Report 14785762 (Version 3)
Quarter: 2019Q2

REPORT INFORMATION
  Report Type: Report from Study
  Country: US (occurrence: US)
  Receive Date: 20180421
  Receipt Date: 20190412
  Transmission Date: 20190711
  Serious: No
  Sender: FDA-Public Use
  Company Number: PHEH2018US015532

PATIENT
  Age: 5 Year
  Sex: Male

DRUGS (3)
  1. ILARIS [Suspect]
     Active Substance: CANAKINUMAB
     Dosage: 96 MG, UNK (EVERY 28 DAYS)
     Route: 058
  2. ILARIS [Suspect]
     Active Substance: CANAKINUMAB
     Dosage: 60 MG, Q4W
     Route: 058
  3. ILARIS [Suspect]
     Active Substance: CANAKINUMAB
     Indication: AUTOINFLAMMATORY DISEASE
     Dosage: 48 MG, Q4W
     Route: 058

REACTIONS (7)
  - Autoinflammatory disease [Recovered/Resolved]
  - Pharyngitis streptococcal [Unknown]
  - Rash [Unknown]
  - Pyrexia [Recovered/Resolved]
  - Oropharyngeal pain [Unknown]
  - Pyrexia [Unknown]
  - Condition aggravated [Recovered/Resolved]

NARRATIVE: CASE EVENT DATE: 20180723
